FAERS Safety Report 8059991-2 (Version None)
Quarter: 2012Q1

REPORT INFORMATION
  Report Type: 
  Country: None (occurrence: None)
  Receive Date: 20120120
  Receipt Date: 20120109
  Transmission Date: 20120608
  Serious: Yes (Other)
  Sender: FDA-Public Use
  Company Number: US-BAYER-2010-002596

PATIENT
  Sex: Female
  Weight: 79.365 kg

DRUGS (3)
  1. NORINYL [Concomitant]
     Indication: CONTRACEPTION
  2. YASMIN [Suspect]
     Indication: CONTRACEPTION
     Dosage: UNK
     Dates: start: 20080101, end: 20090101
  3. ORTHO TRI-CYCLEN LO [Concomitant]
     Indication: CONTRACEPTION

REACTIONS (1)
  - GALLBLADDER DISORDER [None]
